FAERS Safety Report 7021554-5 (Version None)
Quarter: 2010Q3

REPORT INFORMATION
  Report Type: 
  Country: None (occurrence: None)
  Receive Date: 20100928
  Receipt Date: 20100917
  Transmission Date: 20110219
  Serious: Yes (Disabling, Other)
  Sender: FDA-Public Use
  Company Number: TRP_07269_2010

PATIENT
  Sex: Female
  Weight: 97.0698 kg

DRUGS (11)
  1. INFERGEN [Suspect]
     Indication: HEPATITIS C
     Dosage: (15 UG OD SUBCUTANEOUS)
     Route: 058
     Dates: start: 20100902, end: 20100916
  2. RIBAVIRIN [Suspect]
     Indication: HEPATITIS C
     Dosage: (600 MG BID ORAL)
     Route: 048
     Dates: start: 20100618, end: 20100916
  3. PEGASYS [Suspect]
     Indication: HEPATITIS C
     Dosage: (180 UG, 180 MCG)
     Dates: start: 20100618
  4. LASIX [Concomitant]
  5. CYMBALTA [Concomitant]
  6. LYRICA [Concomitant]
  7. NEXIUM [Concomitant]
  8. AMBIEN [Concomitant]
  9. ROBAXIN [Concomitant]
  10. NEURONTIN [Concomitant]
  11. MUCINEX [Concomitant]

REACTIONS (11)
  - ABDOMINAL PAIN [None]
  - ANAEMIA [None]
  - ASTHENIA [None]
  - BACK PAIN [None]
  - COUGH [None]
  - IMPAIRED DRIVING ABILITY [None]
  - PAIN [None]
  - PAIN IN EXTREMITY [None]
  - PLEURAL EFFUSION [None]
  - PYREXIA [None]
  - SELF-MEDICATION [None]
